FAERS Safety Report 9281454 (Version 1)
Quarter: 2013Q2

REPORT INFORMATION
  Report Type: Spontaneous
  Country: DE (occurrence: DE)
  Receive Date: 20130509
  Receipt Date: 20130509
  Transmission Date: 20140414
  Serious: Yes (Hospitalization, Other)
  Sender: FDA-Public Use
  Company Number: DE-TEVA-401871GER

PATIENT
  Age: 0 Year
  Sex: Female

DRUGS (1)
  1. PAROXETIN [Suspect]
     Route: 064

REACTIONS (4)
  - Neonatal respiratory distress syndrome [Recovered/Resolved]
  - Hypertriglyceridaemia [Recovered/Resolved]
  - Opisthotonus [Recovering/Resolving]
  - Congenital choroid plexus cyst [Unknown]
